FAERS Safety Report 8124045-3 (Version None)
Quarter: 2012Q1

REPORT INFORMATION
  Report Type: 
  Country: None (occurrence: None)
  Receive Date: 20120209
  Receipt Date: 20120206
  Transmission Date: 20120608
  Serious: No
  Sender: FDA-Public Use
  Company Number: US-PFIZER INC-2012032413

PATIENT
  Sex: Female
  Weight: 78 kg

DRUGS (3)
  1. ACCUPRIL [Suspect]
     Indication: HYPERTENSION
     Dosage: 40 MG, 1X/DAY
     Route: 048
  2. OXYCODONE [Concomitant]
     Indication: PAIN
     Dosage: UNK
  3. LIPITOR [Suspect]
     Dosage: 20 MG, 1X/DAY
     Route: 048

REACTIONS (1)
  - CARPAL TUNNEL SYNDROME [None]
